FAERS Safety Report 7297146-X (Version None)
Quarter: 2011Q1

REPORT INFORMATION
  Report Type: 
  Country: None (occurrence: None)
  Receive Date: 20110216
  Receipt Date: 20110209
  Transmission Date: 20110831
  Serious: Yes (Other)
  Sender: FDA-Public Use
  Company Number: US-PFIZER INC-2010090445

PATIENT
  Sex: Male
  Weight: 79.365 kg

DRUGS (9)
  1. XANAX [Suspect]
     Indication: SLEEP DISORDER
     Dosage: UNK
  2. PRISTIQ [Suspect]
     Indication: DEPRESSION
     Dosage: 50 MG, 1X/DAY
     Dates: start: 20100610
  3. RAMIPRIL [Concomitant]
     Dosage: UNK
  4. TRICOR [Concomitant]
     Dosage: UNK
  5. PANTOPRAZOLE [Concomitant]
     Dosage: 40 MG, UNK
  6. CARVEDILOL [Concomitant]
     Dosage: 6.25 MG, UNK
  7. ACETYLSALICYLIC ACID [Concomitant]
     Dosage: UNK
  8. PLAVIX [Concomitant]
     Dosage: UNK
  9. LIPITOR [Concomitant]
     Dosage: UNK

REACTIONS (5)
  - ASTHENIA [None]
  - DEPRESSION [None]
  - INSOMNIA [None]
  - HEADACHE [None]
  - NAUSEA [None]
